FAERS Safety Report 5259622-0 (Version None)
Quarter: 2007Q1

REPORT INFORMATION
  Report Type: 
  Country: None (occurrence: None)
  Receive Date: 20070307
  Receipt Date: 20070307
  Transmission Date: 20070707
  Serious: Yes (Other)
  Sender: FDA-Public Use
  Company Number: None

PATIENT
  Sex: Male
  Weight: 92.0802 kg

DRUGS (11)
  1. OLANZAPINE [Suspect]
     Indication: AGITATION
     Dosage: 2.5MG HS PO
     Route: 048
     Dates: start: 20070223, end: 20070305
  2. ATENOLOL [Concomitant]
  3. APAP TAB [Concomitant]
  4. HYDROCHLOROTHIAZIDE [Concomitant]
  5. LISINOPRIL [Concomitant]
  6. TERAZOSIN HCL [Concomitant]
  7. LEVOTHYROXINE SODIUM [Concomitant]
  8. GLYBURIDE [Concomitant]
  9. FLUOXETINE [Concomitant]
  10. FELODIPINE [Concomitant]
  11. ASPIRIN [Concomitant]

REACTIONS (1)
  - LETHARGY [None]
